FAERS Safety Report 8208265-5 (Version None)
Quarter: 2012Q1

REPORT INFORMATION
  Report Type: 
  Country: None (occurrence: None)
  Receive Date: 20120314
  Receipt Date: 20120309
  Transmission Date: 20120608
  Serious: Yes (Other)
  Sender: FDA-Public Use
  Company Number: PHHY2012CA017172

PATIENT
  Sex: Female

DRUGS (6)
  1. ZOLEDRONOC ACID [Suspect]
     Dosage: UNK UKN, UNK
     Route: 042
     Dates: start: 20100604
  2. ARTHROTEC [Concomitant]
     Dosage: UNK UKN, UNK
  3. COLACE [Concomitant]
     Dosage: UNK UKN, UNK
  4. VITAMIN A [Concomitant]
     Dosage: UNK UKN, UNK
  5. ZOLEDRONOC ACID [Suspect]
     Dosage: UNK UKN, UNK
     Route: 042
     Dates: start: 20110525
  6. VITAMIN B-12 [Concomitant]
     Dosage: UNK UKN, UNK

REACTIONS (2)
  - FEMUR FRACTURE [None]
  - PATHOLOGICAL FRACTURE [None]
